FAERS Safety Report 6541877-3 (Version None)
Quarter: 2010Q1

REPORT INFORMATION
  Report Type: 
  Country: None (occurrence: None)
  Receive Date: 20100119
  Receipt Date: 20100106
  Transmission Date: 20100710
  Serious: Yes (Other)
  Sender: FDA-Public Use
  Company Number: CH-PFIZER INC-2010002727

PATIENT
  Age: 41 Year
  Sex: Female

DRUGS (2)
  1. ATARAX [Suspect]
     Indication: PSORIASIS
     Dosage: UNK
     Route: 048
     Dates: start: 20090901
  2. METHOTREXATE [Suspect]
     Indication: PSORIASIS
     Dosage: UNK
     Route: 048
     Dates: start: 20090901

REACTIONS (4)
  - ALCOHOLISM [None]
  - ATAXIA [None]
  - OVERDOSE [None]
  - SOMNOLENCE [None]
